FAERS Safety Report 21021009 (Version 1)
Quarter: 2022Q2

REPORT INFORMATION
  Report Type: Spontaneous
  Country: CN (occurrence: CN)
  Receive Date: 20220629
  Receipt Date: 20220629
  Transmission Date: 20220721
  Serious: Yes (Other)
  Sender: FDA-Public Use
  Company Number: CN-BAYER-2022A089073

PATIENT
  Age: 73 Year
  Sex: Female
  Weight: 52 kg

DRUGS (9)
  1. XARELTO [Suspect]
     Active Substance: RIVAROXABAN
     Indication: Anticoagulant therapy
     Dosage: 1.5 DF, QD
     Route: 048
     Dates: start: 20191224, end: 20191230
  2. DIBUTYL PHTHALATE [Suspect]
     Active Substance: DIBUTYL PHTHALATE
     Indication: Metabolic abnormality management
     Dosage: 2 DF, TID
     Route: 048
     Dates: start: 20191218, end: 20191230
  3. PITAVASTATIN CALCIUM [Suspect]
     Active Substance: PITAVASTATIN CALCIUM
     Indication: Lipids abnormal
     Dosage: 1 DF, QD
     Route: 048
     Dates: start: 20191219, end: 20191230
  4. CEFTIZOXIME SODIUM [Suspect]
     Active Substance: CEFTIZOXIME SODIUM
     Indication: Anti-infective therapy
     Dosage: 2 G, BID
     Route: 041
     Dates: start: 20191218, end: 20191230
  5. MOXIFLOXACIN HYDROCHLORIDE [Suspect]
     Active Substance: MOXIFLOXACIN HYDROCHLORIDE
     Indication: Anti-infective therapy
     Dosage: 0.4 G, QD
     Route: 041
     Dates: start: 20191218, end: 20191230
  6. AMLODIPINE;ATORVASTATIN CALCIUM [Concomitant]
     Indication: Lipids abnormal
     Dosage: 1 DF, QD
     Dates: start: 20191218, end: 20191219
  7. SODIUM CHLORIDE [Concomitant]
     Active Substance: SODIUM CHLORIDE
     Dosage: 250 ML, QD
     Route: 041
     Dates: start: 20191218, end: 20191230
  8. SODIUM CHLORIDE [Concomitant]
     Active Substance: SODIUM CHLORIDE
     Dosage: 100 ML, BID
     Route: 041
     Dates: start: 20191218, end: 20191230
  9. METOPROLOL [Concomitant]
     Active Substance: METOPROLOL
     Dosage: 1 DF, QD
     Route: 048
     Dates: start: 20191218, end: 20191230

REACTIONS (3)
  - Liver injury [Unknown]
  - Incorrect dose administered [Unknown]
  - Product prescribing issue [Unknown]

NARRATIVE: CASE EVENT DATE: 20191224
